FAERS Safety Report 26056077 (Version 3)
Quarter: 2025Q4

REPORT INFORMATION
  Report Type: Report from Study
  Country: US (occurrence: US)
  Receive Date: 20251118
  Receipt Date: 20251211
  Transmission Date: 20260117
  Serious: Yes (Other)
  Sender: RECORDATI
  Company Number: US-ORPHANEU-2025003326

PATIENT
  Sex: Female
  Weight: 78.458 kg

DRUGS (16)
  1. ISTURISA [Suspect]
     Active Substance: OSILODROSTAT PHOSPHATE
     Indication: Pituitary-dependent Cushing^s syndrome
     Dosage: 1 MG, BID
     Route: 048
     Dates: start: 20250326, end: 202504
  2. ISTURISA [Suspect]
     Active Substance: OSILODROSTAT PHOSPHATE
     Dosage: 1 MG, BID
     Route: 048
     Dates: start: 20250414, end: 20250414
  3. ISTURISA [Suspect]
     Active Substance: OSILODROSTAT PHOSPHATE
     Dosage: 1 MG
     Dates: start: 20250415, end: 2025
  4. ISTURISA [Suspect]
     Active Substance: OSILODROSTAT PHOSPHATE
     Dosage: 1 MG, BID
     Route: 048
     Dates: start: 2025
  5. ISTURISA [Suspect]
     Active Substance: OSILODROSTAT PHOSPHATE
     Dosage: 1 MG, BID
     Route: 048
     Dates: start: 2025
  6. ISTURISA [Suspect]
     Active Substance: OSILODROSTAT PHOSPHATE
     Dosage: 1 MG, BID
     Route: 048
     Dates: start: 2025
  7. AMLODIPINE BESYLATE [Concomitant]
     Active Substance: AMLODIPINE BESYLATE
     Indication: Product used for unknown indication
     Dosage: 5 MG, BID, (5 MG TABLET)
     Route: 048
     Dates: start: 20230328
  8. BUPROPION HYDROCHLORIDE [Concomitant]
     Active Substance: BUPROPION HYDROCHLORIDE
     Indication: Product used for unknown indication
     Dosage: 300 MG, QD, (TABLET EXTENDED RELEASE)
     Route: 048
     Dates: start: 20230328
  9. CALCIUM CARBONATE [Concomitant]
     Active Substance: CALCIUM CARBONATE
     Indication: Product used for unknown indication
     Dosage: 600 MG, QD, (600 MG TABLET)
     Route: 048
     Dates: start: 20230328
  10. FLUOXETINE HYDROCHLORIDE [Concomitant]
     Active Substance: FLUOXETINE HYDROCHLORIDE
     Indication: Product used for unknown indication
     Dosage: 20 MG, QD, (20 MG CAPSULE)
     Route: 048
     Dates: start: 20230328
  11. FOSAMAX [Concomitant]
     Active Substance: ALENDRONATE SODIUM
     Indication: Product used for unknown indication
     Dosage: 70 MG, QW, (70 MG TABLET)
     Route: 048
     Dates: start: 20230328
  12. IRBESARTAN [Concomitant]
     Active Substance: IRBESARTAN
     Indication: Product used for unknown indication
     Dosage: 75 MG, QD, (TABLET)
     Route: 048
     Dates: start: 20230328, end: 20251029
  13. PANTOPRAZOLE SODIUM [Concomitant]
     Active Substance: PANTOPRAZOLE SODIUM
     Indication: Product used for unknown indication
     Dosage: 40 MG DAILY, TABLET DELAYED
     Route: 048
     Dates: start: 20240328
  14. ROSUVASTATIN CALCIUM [Concomitant]
     Active Substance: ROSUVASTATIN CALCIUM
     Indication: Product used for unknown indication
     Dosage: 10 MG, QD, (10 MG TABLET)
     Route: 048
     Dates: start: 20230328
  15. SUMATRIPTAN SUCCINATE [Concomitant]
     Active Substance: SUMATRIPTAN SUCCINATE
     Indication: Product used for unknown indication
     Dosage: 25 MG, PRN (AS NEEDED), (25 MG TABLET)
     Route: 048
     Dates: start: 20230328
  16. TOVIAZ [Concomitant]
     Active Substance: FESOTERODINE FUMARATE
     Indication: Product used for unknown indication
     Dosage: 4 MG DAILY, (TABLET EXTENDED RELEASE)
     Route: 048
     Dates: start: 20230328

REACTIONS (15)
  - Gallbladder hypofunction [Not Recovered/Not Resolved]
  - Meniscus injury [Recovering/Resolving]
  - Nail ridging [Not Recovered/Not Resolved]
  - Nail disorder [Not Recovered/Not Resolved]
  - Bundle branch block right [Not Recovered/Not Resolved]
  - Blood magnesium increased [Not Recovered/Not Resolved]
  - Blood sodium decreased [Not Recovered/Not Resolved]
  - Blood potassium increased [Not Recovered/Not Resolved]
  - Arthralgia [Recovering/Resolving]
  - Arthritis [Not Recovered/Not Resolved]
  - Headache [Recovering/Resolving]
  - Cortisol decreased [Not Recovered/Not Resolved]
  - Abdominal pain upper [Not Recovered/Not Resolved]
  - Abdominal pain upper [Not Recovered/Not Resolved]
  - Nausea [Not Recovered/Not Resolved]

NARRATIVE: CASE EVENT DATE: 20250101
